FAERS Safety Report 8186633-8 (Version None)
Quarter: 2012Q1

REPORT INFORMATION
  Report Type: 
  Country: None (occurrence: None)
  Receive Date: 20120306
  Receipt Date: 20120227
  Transmission Date: 20120608
  Serious: Yes (Hospitalization)
  Sender: FDA-Public Use
  Company Number: AU-B.I. PHARMACEUTICALS,INC./RIDGEFIELD-2011-AU-02252AU

PATIENT
  Sex: Male
  Weight: 85 kg

DRUGS (6)
  1. METFORMIN HCL [Concomitant]
     Dosage: 500 MG
  2. AMITRIPTYLINE HCL [Concomitant]
     Dosage: 50 MG
  3. PANTOPRAZOLE [Concomitant]
     Dosage: 40 MG
  4. PRADAXA [Suspect]
     Indication: ATRIAL FIBRILLATION
     Dosage: 220 MG
     Dates: start: 20111013, end: 20111121
  5. METOPROLOL TARTRATE [Concomitant]
     Dosage: 100 MG
  6. ATORVASTATIN [Concomitant]
     Dosage: 80 MG

REACTIONS (4)
  - TRANSIENT ISCHAEMIC ATTACK [None]
  - ASTHENIA [None]
  - PARAESTHESIA [None]
  - DYSARTHRIA [None]
